FAERS Safety Report 4661162-4 (Version None)
Quarter: 2005Q2

REPORT INFORMATION
  Report Type: 
  Country: None (occurrence: None)
  Receive Date: 20050513
  Receipt Date: 20050413
  Transmission Date: 20051028
  Serious: Yes (Other)
  Sender: FDA-Public Use
  Company Number: IE-ABBOTT-05P-229-0297545-00

PATIENT
  Age: 23 Year
  Sex: Female

DRUGS (1)
  1. KLACID I.V. [Suspect]
     Indication: PNEUMONIA
     Route: 042

REACTIONS (3)
  - CHEST PAIN [None]
  - INJECTION SITE INFLAMMATION [None]
  - MEDICATION ERROR [None]
